FAERS Safety Report 9632583 (Version 1)
Quarter: 2013Q4

REPORT INFORMATION
  Report Type: Spontaneous
  Country: IT (occurrence: IT)
  Receive Date: 20131018
  Receipt Date: 20131018
  Transmission Date: 20140711
  Serious: Yes (Hospitalization)
  Sender: FDA-Public Use
  Company Number: IT-TEVA-437492ISR

PATIENT
  Age: 64 Year
  Sex: Female

DRUGS (3)
  1. CARBOPLATINO [Suspect]
     Indication: BREAST CANCER
     Dosage: 130 MILLIGRAM DAILY; CONCENTRATE FOR SOLUTION FOR INTRAVENOUS  INFUSION
     Route: 042
     Dates: start: 20130924, end: 20130924
  2. ONDANSETRON CLORIDRATO DIIDRATO [Concomitant]
     Dates: start: 20130924, end: 20130924
  3. DESAMETASONE FOSFATO [Concomitant]

REACTIONS (2)
  - Syncope [Recovered/Resolved]
  - Oral discomfort [Recovered/Resolved]
